FAERS Safety Report 22616554 (Version 10)
Quarter: 2025Q2

REPORT INFORMATION
  Report Type: Spontaneous
  Country: US (occurrence: US)
  Receive Date: 20230619
  Receipt Date: 20250401
  Transmission Date: 20250717
  Serious: Yes (Other)
  Sender: BRISTOL MYERS SQUIBB
  Company Number: US-BRISTOL-MYERS SQUIBB COMPANY-2023-085592

PATIENT
  Age: 69 Year
  Sex: Female

DRUGS (2)
  1. REVLIMID [Suspect]
     Active Substance: LENALIDOMIDE
     Indication: Plasma cell myeloma
     Dosage: FREQUENCY: QD FOR 21 DAYS THEN 7 DAYS OFF
     Route: 048
     Dates: start: 202101
  2. REVLIMID [Suspect]
     Active Substance: LENALIDOMIDE
     Dosage: QD
     Route: 048

REACTIONS (10)
  - Insomnia [Unknown]
  - Skin cancer [Unknown]
  - Night sweats [Unknown]
  - Bone pain [Unknown]
  - Diarrhoea [Unknown]
  - White blood cell count decreased [Unknown]
  - Brain neoplasm benign [Unknown]
  - Neuropathy peripheral [Unknown]
  - Fall [Unknown]
  - Skin lesion [Unknown]

NARRATIVE: CASE EVENT DATE: 20220101
